FAERS Safety Report 17494772 (Version 1)
Quarter: 2020Q1

REPORT INFORMATION
  Report Type: Spontaneous
  Country: US (occurrence: US)
  Receive Date: 20200303
  Receipt Date: 20200303
  Transmission Date: 20200409
  Serious: Yes (Other)
  Sender: FDA-Public Use
  Company Number: None

PATIENT
  Age: 60 Year
  Sex: Female
  Weight: 60.75 kg

DRUGS (3)
  1. OMEPRAZOLE. [Concomitant]
     Active Substance: OMEPRAZOLE
  2. PESSARY RING [Concomitant]
  3. TERBINAFINE  HCL [Suspect]
     Active Substance: TERBINAFINE HYDROCHLORIDE
     Indication: BODY TINEA
     Dosage: ?          QUANTITY:30 TABLET(S);?
     Route: 048
     Dates: start: 20191217, end: 20200121

REACTIONS (8)
  - Depression [None]
  - Decreased appetite [None]
  - Ageusia [None]
  - Product communication issue [None]
  - Weight decreased [None]
  - Anger [None]
  - Anxiety [None]
  - Taste disorder [None]

NARRATIVE: CASE EVENT DATE: 20200121
